FAERS Safety Report 7013234-7 (Version None)
Quarter: 2010Q3

REPORT INFORMATION
  Report Type: 
  Country: None (occurrence: None)
  Receive Date: 20100924
  Receipt Date: 20100913
  Transmission Date: 20110219
  Serious: Yes (Life-Threatening, Disabling)
  Sender: FDA-Public Use
  Company Number: US-MERCK-1005USA02687

PATIENT
  Age: 28 Year
  Sex: Male

DRUGS (3)
  1. PROPECIA [Suspect]
     Indication: ALOPECIA
     Route: 048
     Dates: start: 20060324
  2. SYNTHROID [Concomitant]
     Route: 065
  3. MINOXIDIL [Concomitant]
     Route: 065
     Dates: start: 20060324

REACTIONS (1)
  - LYMPHOMA [None]
